FAERS Safety Report 4739026-7 (Version None)
Quarter: 2005Q3

REPORT INFORMATION
  Report Type: 
  Country: None (occurrence: None)
  Receive Date: 20050801
  Receipt Date: 20041208
  Transmission Date: 20060218
  Serious: Yes (Hospitalization)
  Sender: FDA-Public Use
  Company Number: 210997

PATIENT
  Age: 87 Year
  Sex: Male
  Weight: 72.6 kg

DRUGS (3)
  1. RITUXAN [Suspect]
     Indication: B-CELL LYMPHOMA
     Dosage: 375 MG, INTRAVENOUS
     Route: 042
     Dates: start: 20041204, end: 20041208
  2. NEUPOGEN [Concomitant]
  3. CARDIAC MEDICATION NOS (CARDIAC MEDICATION NOS) [Concomitant]

REACTIONS (1)
  - INFUSION RELATED REACTION [None]
